FAERS Safety Report 7640588 (Version 4)
Quarter: 2016Q3

REPORT INFORMATION
  Report Type: Spontaneous
  Country: US (occurrence: US)
  Receive Date: 20101026
  Receipt Date: 20160811
  Transmission Date: 20161109
  Serious: Yes (Other)
  Sender: FDA-Public Use
  Company Number: PHHY2010US68353

PATIENT
  Age: 67 Year
  Sex: Female

DRUGS (1)
  1. RECLAST [Suspect]
     Active Substance: ZOLEDRONIC ACID
     Indication: OSTEITIS DEFORMANS
     Dosage: UNK
     Route: 041
     Dates: start: 20091114

REACTIONS (7)
  - Urinary tract disorder [Recovering/Resolving]
  - Anuria [Unknown]
  - Urine output decreased [Unknown]
  - Urine flow decreased [Unknown]
  - Tremor [Unknown]
  - Pain [Unknown]
  - Influenza like illness [Unknown]

NARRATIVE: CASE EVENT DATE: 20091114
